FAERS Safety Report 4674927-X (Version None)
Quarter: 2005Q2

REPORT INFORMATION
  Report Type: 
  Country: None (occurrence: None)
  Receive Date: 20050525
  Receipt Date: 20050512
  Transmission Date: 20051028
  Serious: Yes (Hospitalization)
  Sender: FDA-Public Use
  Company Number: 2005065405

PATIENT
  Age: 54 Year
  Sex: Female
  Weight: 136.0791 kg

DRUGS (7)
  1. CELEBREX [Suspect]
     Indication: ARTHRITIS
     Dosage: 200 MG, ORAL
     Route: 048
     Dates: end: 20030101
  2. BEXTRA [Suspect]
     Indication: ARTHRITIS
     Dosage: 20 MG (20 MG, 1 IN 1 D), ORAL
     Route: 048
     Dates: start: 20030101, end: 20050101
  3. VERAPAMIL [Concomitant]
  4. ZAFIRLUKAST (ZAFIRLUKAST) [Concomitant]
  5. SIMVASTATIN [Concomitant]
  6. TRIAMTERENE (TRIAMTERENE) [Concomitant]
  7. METHOCARBAMOL [Concomitant]

REACTIONS (10)
  - ARTHRALGIA [None]
  - DIARRHOEA [None]
  - DRUG DOSE OMISSION [None]
  - DRUG INEFFECTIVE [None]
  - DYSGEUSIA [None]
  - EATING DISORDER [None]
  - ECONOMIC PROBLEM [None]
  - HAEMORRHOIDAL HAEMORRHAGE [None]
  - VERTIGO POSITIONAL [None]
  - VOMITING [None]
